FAERS Safety Report 18584295 (Version 1)
Quarter: 2020Q4

REPORT INFORMATION
  Report Type: Other
  Country: EC (occurrence: EC)
  Receive Date: 20201207
  Receipt Date: 20201207
  Transmission Date: 20210114
  Serious: Yes (Death)
  Sender: FDA-Public Use
  Company Number: EC-ROCHE-2727106

PATIENT

DRUGS (1)
  1. TOCILIZUMAB. [Suspect]
     Active Substance: TOCILIZUMAB
     Indication: RHEUMATOID ARTHRITIS
     Route: 065

REACTIONS (1)
  - Intestinal perforation [Fatal]
